FAERS Safety Report 7610687-8 (Version None)
Quarter: 2011Q3

REPORT INFORMATION
  Report Type: 
  Country: None (occurrence: None)
  Receive Date: 20110715
  Receipt Date: 20110708
  Transmission Date: 20111222
  Serious: Yes (Other)
  Sender: FDA-Public Use
  Company Number: FR-PFIZER INC-2011158415

PATIENT
  Age: 59 Year
  Sex: Male

DRUGS (8)
  1. CELLCEPT [Suspect]
     Dosage: 2 DF, 2X/DAY
     Route: 048
     Dates: start: 20110101, end: 20110520
  2. KEPPRA [Concomitant]
  3. EQUANIL [Concomitant]
  4. PANTOPRAZOLE [Suspect]
     Dosage: 40 MG,  2 DF DAILY
     Route: 042
     Dates: start: 20110519, end: 20110520
  5. NEXIUM [Suspect]
     Dosage: 40 MG, DAILY
     Route: 048
     Dates: start: 20110517, end: 20110519
  6. INSULIN [Concomitant]
  7. TACROLIMUS [Suspect]
     Dosage: UNK
     Route: 048
     Dates: start: 20110101
  8. LOVENOX [Concomitant]

REACTIONS (1)
  - PANCYTOPENIA [None]
